FAERS Safety Report 20424297 (Version 1)
Quarter: 2022Q1

REPORT INFORMATION
  Report Type: Report from Study
  Country: DE (occurrence: DE)
  Receive Date: 20220203
  Receipt Date: 20220203
  Transmission Date: 20220423
  Serious: Yes (Hospitalization)
  Sender: FDA-Public Use
  Company Number: DE-ABBVIE-22K-062-4262168-00

PATIENT
  Age: 83 Year
  Sex: Female

DRUGS (7)
  1. HUMIRA [Suspect]
     Active Substance: ADALIMUMAB
     Indication: Rheumatoid arthritis
     Route: 058
     Dates: start: 201207, end: 201301
  2. TRUXIMA [Suspect]
     Active Substance: RITUXIMAB-ABBS
     Indication: Rheumatoid arthritis
     Route: 065
     Dates: start: 201802, end: 201903
  3. LEFLUNOMIDE [Concomitant]
     Active Substance: LEFLUNOMIDE
     Indication: Rheumatoid arthritis
     Dosage: STOPPED IN BETWEEN 23 JUL 2015-03 AUG 2016
  4. LEFLUNOMIDE [Concomitant]
     Active Substance: LEFLUNOMIDE
     Dosage: START DATE BETWEEN 23 JUL 2015- 03 AUG 2016, STOP DATE BETWEEN 10 SEP 2019-16 DEC 2019
  5. LEFLUNOMIDE [Concomitant]
     Active Substance: LEFLUNOMIDE
     Dosage: START DATE BETWEEN 10 SEP 2019-16 DEC 2019, STOP DATE BETWEEN 16DEC2019-23JUN2020
  6. MABTHERA SC [Concomitant]
     Indication: Product used for unknown indication
  7. RITUXIMAB [Concomitant]
     Active Substance: RITUXIMAB
     Indication: Product used for unknown indication

REACTIONS (3)
  - Skin ulcer [Unknown]
  - Peripheral arterial occlusive disease [Unknown]
  - Staphylococcal infection [Unknown]

NARRATIVE: CASE EVENT DATE: 20210429
